FAERS Safety Report 26186484 (Version 1)
Quarter: 2025Q4

REPORT INFORMATION
  Report Type: Spontaneous
  Country: US (occurrence: None)
  Receive Date: 20251219
  Receipt Date: 20251219
  Transmission Date: 20260117
  Serious: Yes (Hospitalization)
  Sender: FDA-CTU
  Company Number: None

PATIENT
  Sex: Male
  Weight: 81 kg

DRUGS (1)
  1. INDOMETHACIN [Suspect]
     Active Substance: INDOMETHACIN
     Dosage: FREQUENCY : TWICE A DAY;
     Route: 048
     Dates: start: 20250106, end: 20250602

REACTIONS (6)
  - Helicobacter infection [None]
  - Upper gastrointestinal haemorrhage [None]
  - Haematocrit decreased [None]
  - Haemoglobin decreased [None]
  - Red blood cell count decreased [None]
  - Gastrointestinal ulcer [None]

NARRATIVE: CASE EVENT DATE: 20250604
